FAERS Safety Report 4766280-8 (Version None)
Quarter: 2005Q3

REPORT INFORMATION
  Report Type: 
  Country: None (occurrence: None)
  Receive Date: 20050912
  Receipt Date: 20050819
  Transmission Date: 20060218
  Serious: Yes (Hospitalization)
  Sender: FDA-Public Use
  Company Number: DE-BRISTOL-MYERS SQUIBB COMPANY-13103809

PATIENT
  Age: 58 Year
  Sex: Female

DRUGS (10)
  1. GLUCOPHAGE [Suspect]
     Indication: DIABETES MELLITUS NON-INSULIN-DEPENDENT
     Route: 048
     Dates: start: 20030101
  2. LORZAAR PLUS [Concomitant]
     Indication: HYPERTENSION
     Route: 048
     Dates: start: 20000101
  3. ATENOLOL [Concomitant]
     Indication: HYPERTENSION
     Route: 048
     Dates: start: 19800101
  4. JODTHYROX [Concomitant]
     Indication: HYPOTHYROIDISM
     Route: 048
     Dates: start: 19950101
  5. ALLOPURINOL [Concomitant]
     Indication: HYPERURICAEMIA
     Route: 048
  6. TRAMADOL HCL [Concomitant]
     Indication: PAIN
     Route: 048
  7. DICLOPHLOGONT [Concomitant]
     Indication: PAIN
     Route: 048
  8. LIVIELLA [Concomitant]
     Route: 048
  9. VITAMIN D [Concomitant]
     Indication: HYPERPARATHYROIDISM
     Route: 048
  10. ACTIVELLA [Concomitant]
     Indication: HORMONE REPLACEMENT THERAPY

REACTIONS (4)
  - BLOOD CREATINE PHOSPHOKINASE INCREASED [None]
  - EXCORIATION [None]
  - GRAVITATIONAL OEDEMA [None]
  - LIPOEDEMA [None]
